FAERS Safety Report 24579478 (Version 1)
Quarter: 2024Q4

REPORT INFORMATION
  Report Type: Spontaneous
  Country: US (occurrence: US)
  Receive Date: 20241105
  Receipt Date: 20241105
  Transmission Date: 20250114
  Serious: Yes (Other)
  Sender: JOHNSON AND JOHNSON
  Company Number: US-JNJFOC-20241086048

PATIENT
  Age: 6 Decade
  Sex: Female

DRUGS (11)
  1. UPTRAVI [Suspect]
     Active Substance: SELEXIPAG
     Indication: Product used for unknown indication
     Route: 048
  2. ORENITRAM [Suspect]
     Active Substance: TREPROSTINIL
     Indication: Pulmonary arterial hypertension
     Route: 048
     Dates: start: 20240813
  3. CLONIDINE HYDROCHLORIDE [Concomitant]
     Active Substance: CLONIDINE HYDROCHLORIDE
  4. LABETALOL HYDROCHLORIDE [Concomitant]
     Active Substance: LABETALOL HYDROCHLORIDE
  5. VELPHORO [Concomitant]
     Active Substance: SUCROFERRIC OXYHYDROXIDE
  6. OLMESARTAN MEDOXOMIL [Concomitant]
     Active Substance: OLMESARTAN MEDOXOMIL
  7. FUROSEMIDE [Concomitant]
     Active Substance: FUROSEMIDE
  8. NEPHRO-VITE [ASCORBIC ACID;BIOTIN;CYANOCOBALAMIN;FOLIC ACID;NICOTINAMI [Concomitant]
  9. SEVELAMER HYDROCHLORIDE [Concomitant]
     Active Substance: SEVELAMER HYDROCHLORIDE
  10. DOXAZOSIN MESYLATE [Concomitant]
     Active Substance: DOXAZOSIN MESYLATE
  11. MINOXIDIL [Concomitant]
     Active Substance: MINOXIDIL

REACTIONS (4)
  - Ascites [Unknown]
  - Headache [Unknown]
  - Cough [Unknown]
  - Vomiting [Unknown]

NARRATIVE: CASE EVENT DATE: 20240101
